FAERS Safety Report 7377520-3 (Version None)
Quarter: 2011Q1

REPORT INFORMATION
  Report Type: 
  Country: None (occurrence: None)
  Receive Date: 20110328
  Receipt Date: 20110318
  Transmission Date: 20110831
  Serious: Yes (Other)
  Sender: FDA-Public Use
  Company Number: MA-ABBOTT-11P-110-0701305-00

PATIENT
  Age: 50 Year
  Sex: Male

DRUGS (4)
  1. ZYLORIC [Concomitant]
  2. ZYLORIC [Concomitant]
     Indication: HYPERURICAEMIA
     Route: 048
  3. LIPANTHYL 145MG [Suspect]
     Indication: PRODUCT USED FOR UNKNOWN INDICATION
     Route: 048
  4. LIPANTHYL 145MG [Suspect]

REACTIONS (2)
  - BLOOD CREATININE INCREASED [None]
  - BLOOD PRESSURE INCREASED [None]
